FAERS Safety Report 13897481 (Version 1)
Quarter: 2017Q3

REPORT INFORMATION
  Report Type: Spontaneous
  Country: US (occurrence: US)
  Receive Date: 20170823
  Receipt Date: 20170823
  Transmission Date: 20171127
  Serious: Yes (Other)
  Sender: FDA-Public Use
  Company Number: US-SA-2017SA022634

PATIENT
  Age: 74 Year
  Sex: Male
  Weight: 81.6 kg

DRUGS (4)
  1. MULTAQ [Suspect]
     Active Substance: DRONEDARONE
     Indication: ATRIAL FIBRILLATION
     Route: 048
     Dates: start: 20161122, end: 20170206
  2. ELIQUIS [Concomitant]
     Active Substance: APIXABAN
     Dates: start: 201611
  3. METOPROLOL. [Concomitant]
     Active Substance: METOPROLOL
  4. ATORVASTATIN [Concomitant]
     Active Substance: ATORVASTATIN

REACTIONS (2)
  - Drug ineffective [Unknown]
  - Atrial fibrillation [Unknown]
